FAERS Safety Report 4658985-4 (Version None)
Quarter: 2005Q2

REPORT INFORMATION
  Report Type: 
  Country: None (occurrence: None)
  Receive Date: 20050511
  Receipt Date: 20050309
  Transmission Date: 20051028
  Serious: Yes (Hospitalization)
  Sender: FDA-Public Use
  Company Number: JP-NOVOPROD-242834

PATIENT
  Age: 5 Year
  Sex: Female
  Weight: 12 kg

DRUGS (1)
  1. BLINDED DOSE OF NORDITROPIN SIMPLEXX [Suspect]
     Indication: SMALL FOR DATES BABY
     Dosage: UNK, UNK
     Route: 058
     Dates: start: 20040317

REACTIONS (1)
  - TORTICOLLIS [None]
